FAERS Safety Report 6218709-6 (Version None)
Quarter: 2009Q2

REPORT INFORMATION
  Report Type: 
  Country: None (occurrence: None)
  Receive Date: 20090608
  Receipt Date: 20090529
  Transmission Date: 20091009
  Serious: Yes (Hospitalization, Other)
  Sender: FDA-Public Use
  Company Number: DE-AMGEN-UK251649

PATIENT
  Sex: Female
  Weight: 88 kg

DRUGS (4)
  1. NEULASTA [Suspect]
     Indication: CHEMOTHERAPY
     Route: 058
     Dates: start: 20070914, end: 20070928
  2. EPIRUBICIN [Concomitant]
     Dates: start: 20070913, end: 20070927
  3. GRANISETRON HCL [Concomitant]
     Dates: start: 20070913, end: 20070927
  4. DEXAMETHASONE [Concomitant]
     Dates: start: 20070913, end: 20070927

REACTIONS (6)
  - CAPILLARY LEAK SYNDROME [None]
  - LUNG DISORDER [None]
  - LYMPHOEDEMA [None]
  - OEDEMA [None]
  - PAIN [None]
  - PLEURAL EFFUSION [None]
